FAERS Safety Report 24108605 (Version 1)
Quarter: 2024Q3

REPORT INFORMATION
  Report Type: Spontaneous
  Country: US (occurrence: US)
  Receive Date: 20240718
  Receipt Date: 20240718
  Transmission Date: 20241016
  Serious: Yes (Hospitalization)
  Sender: SANDOZ
  Company Number: US-SANDOZ-SDZ2024US066096

PATIENT
  Sex: Male

DRUGS (1)
  1. INDOMETHACIN [Interacting]
     Active Substance: INDOMETHACIN
     Indication: Arthralgia
     Dosage: 75 MG
     Route: 065

REACTIONS (2)
  - Blood glucose decreased [Unknown]
  - Drug interaction [Unknown]
